FAERS Safety Report 13283945 (Version 3)
Quarter: 2017Q3

REPORT INFORMATION
  Report Type: Spontaneous
  Country: GB (occurrence: GB)
  Receive Date: 20170301
  Receipt Date: 20170720
  Transmission Date: 20171127
  Serious: Yes (Disabling)
  Sender: FDA-Public Use
  Company Number: GB-PFIZER INC-2017082955

PATIENT
  Age: 60 Year
  Sex: Female
  Weight: 65 kg

DRUGS (1)
  1. METHOTREXATE SODIUM. [Suspect]
     Active Substance: METHOTREXATE SODIUM
     Indication: PSORIATIC ARTHROPATHY
     Dosage: 7.5 MG, WEEKLY
     Route: 048
     Dates: start: 20151015, end: 20160930

REACTIONS (7)
  - Psoriatic arthropathy [Recovered/Resolved with Sequelae]
  - Condition aggravated [Recovered/Resolved with Sequelae]
  - Peripheral swelling [Recovered/Resolved with Sequelae]
  - Nail disorder [Recovered/Resolved with Sequelae]
  - Fall [Unknown]
  - Wrist fracture [Unknown]
  - Skin disorder [Recovered/Resolved with Sequelae]

NARRATIVE: CASE EVENT DATE: 20151015
